FAERS Safety Report 10349215 (Version 1)
Quarter: 2014Q3

REPORT INFORMATION
  Report Type: Spontaneous
  Country: NL (occurrence: NL)
  Receive Date: 20140730
  Receipt Date: 20140730
  Transmission Date: 20150326
  Serious: Yes (Hospitalization, Other)
  Sender: FDA-Public Use
  Company Number: NL-AMGEN-NLDSP2014055445

PATIENT
  Age: 77 Year
  Sex: Female

DRUGS (9)
  1. FRAXIPARINE                        /01437702/ [Concomitant]
     Dosage: 1 DAILY DOSE OF 5,700 IU (HAD IT UNTIL 6 WEEKS AFTER SURGERY) 1 TIMES PER 1 DAY 1 DF
  2. SIMVASTATINE [Concomitant]
     Active Substance: SIMVASTATIN
     Dosage: 20 MG, QD
  3. PAROXETINE [Concomitant]
     Active Substance: PAROXETINE\PAROXETINE HYDROCHLORIDE
     Dosage: 1 TIMES PER 1 DAY 10 MG
  4. KALCIPOS-D [Concomitant]
     Active Substance: CALCIUM CARBONATE\CHOLECALCIFEROL
     Dosage: 500 MG / 800 IU 1 TIMES PER 1 DAYS 1 DF
  5. CARBOPLATIN. [Concomitant]
     Active Substance: CARBOPLATIN
     Indication: OVARIAN CANCER STAGE III
     Dosage: 600 MG, UNK
     Dates: start: 20140516
  6. OMEPRAZOLE. [Concomitant]
     Active Substance: OMEPRAZOLE
     Dosage: 20 MG, QD
  7. NEULASTA [Suspect]
     Active Substance: PEGFILGRASTIM
     Indication: PRODUCT USED FOR UNKNOWN INDICATION
     Dosage: 1 DF, UNK
     Route: 065
     Dates: start: 20140517, end: 20140517
  8. AMITRIPTYLINE [Concomitant]
     Active Substance: AMITRIPTYLINE
     Dosage: 10 MG, QD
  9. FORLAX                             /00754501/ [Concomitant]
     Active Substance: POLYETHYLENE GLYCOL 4000
     Dosage: TIMES PER DF

REACTIONS (5)
  - Capillary leak syndrome [Recovered/Resolved]
  - Hypokalaemia [Recovered/Resolved]
  - Oedema peripheral [Recovered/Resolved]
  - Leukocytosis [Recovered/Resolved]
  - Pleural effusion [Recovered/Resolved]

NARRATIVE: CASE EVENT DATE: 20140520
